FAERS Safety Report 24184233 (Version 1)
Quarter: 2024Q3

REPORT INFORMATION
  Report Type: Spontaneous
  Country: US (occurrence: None)
  Receive Date: 20240806
  Receipt Date: 20240806
  Transmission Date: 20241017
  Serious: Yes (Hospitalization)
  Sender: Public
  Company Number: None

PATIENT
  Age: 76 Year
  Sex: Male
  Weight: 99 kg

DRUGS (1)
  1. LEQEMBI [Suspect]
     Active Substance: LECANEMAB-IRMB
     Indication: Cognitive disorder
     Dosage: 1000 MG EV ERY 2 WEEKS INTRAVENOUS
     Route: 042
     Dates: start: 20240806

REACTIONS (7)
  - Infusion related reaction [None]
  - Visual brightness [None]
  - Dizziness [None]
  - Nausea [None]
  - Fall [None]
  - Head injury [None]
  - Blood pressure decreased [None]

NARRATIVE: CASE EVENT DATE: 20240806
